FAERS Safety Report 6639943-7 (Version None)
Quarter: 2010Q1

REPORT INFORMATION
  Report Type: 
  Country: None (occurrence: None)
  Receive Date: 20100318
  Receipt Date: 20100312
  Transmission Date: 20100710
  Serious: Yes (Other)
  Sender: FDA-Public Use
  Company Number: CHPA2010US05120

PATIENT
  Sex: Female

DRUGS (2)
  1. VOLTAREN [Suspect]
     Indication: MUSCULOSKELETAL PAIN
     Dosage: 2 GRAMS, PRN
     Route: 061
     Dates: start: 20090101
  2. VOLTAREN [Suspect]
     Indication: ARTHRALGIA

REACTIONS (3)
  - DRUG ADMINISTERED AT INAPPROPRIATE SITE [None]
  - SURGERY [None]
  - THERAPEUTIC RESPONSE UNEXPECTED [None]
